FAERS Safety Report 21583809 (Version 1)
Quarter: 2022Q4

REPORT INFORMATION
  Report Type: Spontaneous
  Country: US (occurrence: None)
  Receive Date: 20221111
  Receipt Date: 20221111
  Transmission Date: 20230113
  Serious: No
  Sender: FDA-Public Use
  Company Number: 2022A370088

PATIENT
  Age: 951 Month
  Sex: Male
  Weight: 99.8 kg

DRUGS (1)
  1. SYMBICORT [Suspect]
     Active Substance: BUDESONIDE\FORMOTEROL FUMARATE DIHYDRATE
     Indication: Asthma
     Dosage: 80UG/4.5UG TWO TIMES A DAY
     Route: 055
     Dates: start: 202211

REACTIONS (4)
  - Dyspnoea [Unknown]
  - Asthma [Unknown]
  - Drug delivery system issue [Unknown]
  - Drug ineffective [Unknown]

NARRATIVE: CASE EVENT DATE: 20221101
